FAERS Safety Report 9746279 (Version 1)
Quarter: 2013Q4

REPORT INFORMATION
  Report Type: Spontaneous
  Country: US (occurrence: None)
  Receive Date: 20131209
  Receipt Date: 20131209
  Transmission Date: 20140711
  Serious: Yes (Other)
  Sender: FDA-Public Use
  Company Number: None

PATIENT
  Age: 63 Year
  Sex: Male
  Weight: 158.76 kg

DRUGS (1)
  1. SAVELLA [Suspect]
     Indication: FIBROMYALGIA
     Route: 048
     Dates: start: 20130918, end: 20131208

REACTIONS (5)
  - Insomnia [None]
  - Drug dose omission [None]
  - Aggression [None]
  - Withdrawal syndrome [None]
  - Abnormal behaviour [None]
